FAERS Safety Report 15738959 (Version 1)
Quarter: 2018Q4

REPORT INFORMATION
  Report Type: Spontaneous
  Country: US (occurrence: US)
  Receive Date: 20181219
  Receipt Date: 20181219
  Transmission Date: 20190205
  Serious: No
  Sender: FDA-Public Use
  Company Number: US-VERTEX PHARMACEUTICALS-2018-009632

PATIENT
  Sex: Female
  Weight: 23 kg

DRUGS (6)
  1. SODIUM CHLORIDE. [Concomitant]
     Active Substance: SODIUM CHLORIDE
     Dosage: UNK
  2. PANCREASE                          /00014701/ [Concomitant]
     Dosage: UNK
  3. ORKAMBI [Suspect]
     Active Substance: IVACAFTOR\LUMACAFTOR
     Indication: CYSTIC FIBROSIS
     Dosage: UNK, BID
     Route: 048
  4. PULMOZYME [Concomitant]
     Active Substance: DORNASE ALFA
     Dosage: UNK
  5. VENTOLIN HFA [Concomitant]
     Active Substance: ALBUTEROL SULFATE
     Dosage: UNK
  6. LANSOPRAZOLE. [Concomitant]
     Active Substance: LANSOPRAZOLE
     Dosage: UNK

REACTIONS (1)
  - Influenza [Unknown]

NARRATIVE: CASE EVENT DATE: 2018
